FAERS Safety Report 7385721-3 (Version None)
Quarter: 2011Q1

REPORT INFORMATION
  Report Type: 
  Country: None (occurrence: None)
  Receive Date: 20110331
  Receipt Date: 20101130
  Transmission Date: 20110831
  Serious: Yes (Other)
  Sender: FDA-Public Use
  Company Number: US-BAYER-201018616NA

PATIENT
  Sex: Female

DRUGS (10)
  1. TRAZODONE [Concomitant]
  2. ERYTHROMYCIN [Concomitant]
  3. FLUOXETINE [Concomitant]
  4. MINOCYCLINE [Concomitant]
     Indication: ACNE
  5. PROTONIX [Concomitant]
     Indication: SKIN ULCER
  6. PORTIA-28 [Concomitant]
  7. YASMIN [Suspect]
     Indication: ACNE
     Dosage: UNK UNK, UNK
     Route: 048
     Dates: start: 20040101, end: 20050101
  8. YAZ [Suspect]
     Route: 048
  9. YASMIN [Suspect]
     Dosage: UNK
     Dates: end: 20060301
  10. NAPROXEN [Concomitant]

REACTIONS (3)
  - BILIARY DYSKINESIA [None]
  - GALLBLADDER DISORDER [None]
  - PAIN [None]
